FAERS Safety Report 6535697-3 (Version None)
Quarter: 2010Q1

REPORT INFORMATION
  Report Type: 
  Country: None (occurrence: None)
  Receive Date: 20100111
  Receipt Date: 20100111
  Transmission Date: 20100710
  Serious: Yes (Other)
  Sender: FDA-Public Use
  Company Number: None

PATIENT
  Age: 30 Year
  Sex: Male
  Weight: 154.223 kg

DRUGS (2)
  1. TRAZODONE HCL [Suspect]
     Indication: ANTIDEPRESSANT THERAPY
     Dosage: 300MG NIGHTLY PO
     Route: 048
  2. TRAZODONE HCL [Suspect]
     Indication: INSOMNIA
     Dosage: 300MG NIGHTLY PO
     Route: 048

REACTIONS (3)
  - DIZZINESS [None]
  - PRODUCT QUALITY ISSUE [None]
  - TINNITUS [None]
